FAERS Safety Report 5748683-8 (Version None)
Quarter: 2008Q2

REPORT INFORMATION
  Report Type: 
  Country: None (occurrence: None)
  Receive Date: 20080522
  Receipt Date: 20080509
  Transmission Date: 20081010
  Serious: Yes (Other)
  Sender: FDA-Public Use
  Company Number: ABX55-08-0101

PATIENT
  Age: 58 Year
  Sex: Male
  Weight: 112.0385 kg

DRUGS (14)
  1. ABRAXANE [Suspect]
     Indication: METASTATIC MALIGNANT MELANOMA
     Dosage: 277.2 MG (120 MG/M2, INTRAVENOUS
     Route: 042
     Dates: start: 20070821
  2. AVASTIN [Suspect]
     Indication: METASTATIC MALIGNANT MELANOMA
     Dosage: 1050 MG (10 MG/KG), INTRAVENOUS
     Route: 042
     Dates: start: 20070821
  3. ALTACE [Concomitant]
  4. LOZOL [Concomitant]
  5. PROTONIX [Concomitant]
  6. FIBER (PSYLLIUM HYDROPHILIC MUCILLOID) [Concomitant]
  7. ASPIRIN [Concomitant]
  8. MULTI-VITAMIN [Concomitant]
  9. ADVIL [Concomitant]
  10. IMODIUM [Concomitant]
  11. MYLANTA (MYLANTA) [Concomitant]
  12. ZOFRAN (ONDANSETRON HDROCHLORIDE) [Concomitant]
  13. ASTELIN [Concomitant]
  14. NEUTROTIN (GABAPENTIN) [Concomitant]

REACTIONS (2)
  - MACULAR OEDEMA [None]
  - POSTERIOR CAPSULE OPACIFICATION [None]
